FAERS Safety Report 7294976-5 (Version None)
Quarter: 2011Q1

REPORT INFORMATION
  Report Type: 
  Country: None (occurrence: None)
  Receive Date: 20110216
  Receipt Date: 20110203
  Transmission Date: 20110831
  Serious: Yes (Other)
  Sender: FDA-Public Use
  Company Number: US-ELI_LILLY_AND_COMPANY-US201102001888

PATIENT
  Age: 78 Year
  Sex: Female

DRUGS (5)
  1. FORTEO [Suspect]
     Dosage: UNK, UNKNOWN
     Route: 065
     Dates: start: 20101201
  2. SYNTHROID [Concomitant]
     Indication: AUTOIMMUNE THYROIDITIS
     Dosage: 88 UG, DAILY (1/D)
     Dates: start: 19850101
  3. FORTEO [Suspect]
     Dosage: UNK, UNKNOWN
     Route: 065
     Dates: start: 20050315
  4. NEXIUM [Concomitant]
     Dosage: 40 MG, DAILY (1/D)
  5. CALTRATE PLUS [Concomitant]
     Dosage: UNK, 3/D

REACTIONS (5)
  - UTERINE CANCER [None]
  - CEREBRAL HAEMORRHAGE [None]
  - HIP FRACTURE [None]
  - PAIN [None]
  - CEREBROVASCULAR ACCIDENT [None]
